FAERS Safety Report 24804895 (Version 1)
Quarter: 2025Q1

REPORT INFORMATION
  Report Type: Spontaneous
  Country: CH (occurrence: CH)
  Receive Date: 20250103
  Receipt Date: 20250103
  Transmission Date: 20250408
  Serious: Yes (Life-Threatening, Other)
  Sender: PFIZER
  Company Number: CH-PFIZER INC-PV202400168213

PATIENT
  Age: 40 Year
  Sex: Male

DRUGS (3)
  1. ELRANATAMAB [Suspect]
     Active Substance: ELRANATAMAB
     Indication: Plasma cell leukaemia
     Dosage: 76 MG, WEEKLY (ONCE WEEKLY IN A 28-D CYCLE)
     Route: 058
     Dates: start: 202302
  2. ELRANATAMAB [Suspect]
     Active Substance: ELRANATAMAB
     Route: 058
  3. ELRANATAMAB [Suspect]
     Active Substance: ELRANATAMAB
     Route: 058

REACTIONS (5)
  - Neutropenia [Unknown]
  - Haematotoxicity [Unknown]
  - Cytokine release syndrome [Unknown]
  - Off label use [Unknown]
  - Drug effective for unapproved indication [Unknown]

NARRATIVE: CASE EVENT DATE: 20230201
